FAERS Safety Report 21681746 (Version 2)
Quarter: 2022Q4

REPORT INFORMATION
  Report Type: Report from Study
  Country: NL (occurrence: NL)
  Receive Date: 20221205
  Receipt Date: 20221208
  Transmission Date: 20230113
  Serious: Yes (Death, Hospitalization)
  Sender: FDA-Public Use
  Company Number: NL-002147023-NVSC2022NL281119

PATIENT
  Sex: Female
  Weight: 53.7 kg

DRUGS (11)
  1. ACLASTA [Suspect]
     Active Substance: ZOLEDRONIC ACID
     Indication: Osteoporosis
     Dosage: 5 MG, Q12MO (ONCE PER YEAR)
     Route: 042
     Dates: start: 202112, end: 202201
  2. RASILEZ [Concomitant]
     Active Substance: ALISKIREN
     Indication: Product used for unknown indication
     Dosage: 300 MG, QD
     Route: 065
  3. DOXYCYCLINE [Concomitant]
     Active Substance: DOXYCYCLINE
     Indication: Product used for unknown indication
     Dosage: 100 MG, QW (PER WEEK 8 TABLETS 1ST DAY 2, THEN 1 TIME DAY; TAKE IN THE MORNING) (PROVIDED ON 04 FEB
     Route: 065
  4. IRON [Concomitant]
     Active Substance: IRON
     Indication: Product used for unknown indication
     Dosage: UNK (ASKED TO TEMPORARILY STOP IRON)
     Route: 065
  5. AMOXICILLIN [Concomitant]
     Active Substance: AMOXICILLIN
     Indication: Product used for unknown indication
     Dosage: 500 MG, TID (PROVIDED ON 27 JAN 2022)
     Route: 065
  6. ACETYLCYSTEINE [Concomitant]
     Active Substance: ACETYLCYSTEINE
     Indication: Product used for unknown indication
     Dosage: 600 MG
     Route: 065
  7. CLEMASTINE [Concomitant]
     Active Substance: CLEMASTINE
     Indication: Product used for unknown indication
     Dosage: 1 MG
     Route: 065
  8. CLEMASTINE FUMARATE [Concomitant]
     Active Substance: CLEMASTINE FUMARATE
     Indication: Product used for unknown indication
     Dosage: 1 MG, QD (PROVIDED ON 17 FEB 2022 FOR A PERIOD OF 40)
     Route: 065
  9. RISEDRONATE SODIUM [Concomitant]
     Active Substance: RISEDRONATE SODIUM
     Indication: Product used for unknown indication
     Dosage: UNK
     Route: 065
     Dates: start: 2010, end: 2020
  10. RISEDRONATE SODIUM [Concomitant]
     Active Substance: RISEDRONATE SODIUM
     Dosage: UNK
     Route: 065
     Dates: start: 2020, end: 2021
  11. TERIPARATIDE [Concomitant]
     Active Substance: TERIPARATIDE
     Indication: Product used for unknown indication
     Dosage: UNK
     Route: 065
     Dates: start: 202001, end: 202112

REACTIONS (4)
  - Death [Fatal]
  - Pneumonia aspiration [Unknown]
  - Pulmonary embolism [Unknown]
  - Asthma [Unknown]
